FAERS Safety Report 9866893 (Version 1)
Quarter: 2014Q1

REPORT INFORMATION
  Report Type: Spontaneous
  Country: US (occurrence: None)
  Receive Date: 20140203
  Receipt Date: 20140203
  Transmission Date: 20141002
  Serious: Yes (Life-Threatening, Hospitalization, Other)
  Sender: FDA-Public Use
  Company Number: None

PATIENT
  Age: 18 Year
  Sex: Female

DRUGS (1)
  1. STIMATE [Suspect]
     Indication: VON WILLEBRAND^S DISEASE
     Dosage: 2 PUFFS?ONCE DAILY ?INHALATION
     Route: 055
     Dates: start: 20140107, end: 20140108

REACTIONS (10)
  - Speech disorder [None]
  - Dyskinesia [None]
  - Hallucination [None]
  - Feeling abnormal [None]
  - Hyponatraemia [None]
  - Lethargy [None]
  - Confusional state [None]
  - Headache [None]
  - Vomiting [None]
  - Influenza [None]
